FAERS Safety Report 5377082-6 (Version None)
Quarter: 2007Q2

REPORT INFORMATION
  Report Type: 
  Country: None (occurrence: None)
  Receive Date: 20070628
  Receipt Date: 20070628
  Transmission Date: 20071010
  Serious: No
  Sender: FDA-Public Use
  Company Number: None

PATIENT
  Age: 91 Year
  Sex: Female

DRUGS (4)
  1. LINEZOLID [Suspect]
     Indication: CELLULITIS
     Dosage: 600 MG Q 12 HOURS IV
     Route: 042
     Dates: start: 20070602, end: 20070606
  2. AZITHROMYCIN [Concomitant]
  3. LEVOFLOXACIN [Concomitant]
  4. HEPARIN [Concomitant]

REACTIONS (1)
  - THROMBOCYTOPENIA [None]
